FAERS Safety Report 14305069 (Version 1)
Quarter: 2017Q4

REPORT INFORMATION
  Report Type: Spontaneous
  Country: JP (occurrence: JP)
  Receive Date: 20171219
  Receipt Date: 20171219
  Transmission Date: 20180321
  Serious: Yes (Hospitalization, Other)
  Sender: FDA-Public Use
  Company Number: JP-OTSUKA-005222

PATIENT
  Age: 73 Year
  Sex: Male
  Weight: 49.4 kg

DRUGS (16)
  1. DOGMATYL [Concomitant]
     Active Substance: SULPIRIDE
     Indication: DEPRESSION
     Dosage: 100 MG, TID
     Route: 048
     Dates: start: 20080415, end: 20080908
  2. ABILIFY [Suspect]
     Active Substance: ARIPIPRAZOLE
     Dosage: 6 MG, QD
     Route: 048
     Dates: start: 20080610, end: 200809
  3. LENDEM [Concomitant]
     Indication: INSOMNIA
     Dosage: 0.25 MG, QD
     Route: 048
     Dates: start: 20080415, end: 20080512
  4. AMOXAN [Concomitant]
     Active Substance: AMOXAPINE
     Dosage: FORMULATION: CAPSULE  THERAPY ONGOING
     Dates: start: 20080513
  5. MUCOSTA TABLETS 100MG [Concomitant]
     Active Substance: REBAMIPIDE
     Indication: GASTRITIS EROSIVE
     Dosage: 100 MG, TID
     Route: 048
     Dates: start: 20080910
  6. ABILIFY [Suspect]
     Active Substance: ARIPIPRAZOLE
     Indication: DEPRESSION
     Dosage: 3 MG, QD
     Route: 048
     Dates: start: 20080415, end: 20080609
  7. MEILAX [Concomitant]
     Active Substance: ETHYL LOFLAZEPATE
     Indication: GASTRITIS EROSIVE
     Dosage: 2 MG, QD
     Route: 048
     Dates: start: 20080910
  8. RIZE [Concomitant]
     Active Substance: CLOTIAZEPAM
     Indication: ANXIETY
     Dosage: 5 MG, QD
     Route: 048
     Dates: start: 20080415, end: 20080530
  9. SULPIRIDE [Concomitant]
     Active Substance: SULPIRIDE
     Dosage: FORMULATION:TABLET  THERAPY ONGOING
     Dates: start: 20080415, end: 20080908
  10. TRAZODONE [Concomitant]
     Active Substance: TRAZODONE HYDROCHLORIDE
     Indication: DEPRESSION
     Dosage: 50 MG, QD
     Route: 048
     Dates: start: 20080415, end: 20080512
  11. ACINON [Concomitant]
     Active Substance: NIZATIDINE
     Indication: NAUSEA
     Dosage: 150 MG, BID
     Route: 048
     Dates: start: 20080415, end: 20080908
  12. SERTRALINE [Concomitant]
     Active Substance: SERTRALINE HYDROCHLORIDE
     Dosage: FORMULATION: TABLET  THERAPY ONGOING
     Dates: start: 20080415, end: 20080908
  13. AKINETON [Concomitant]
     Active Substance: BIPERIDEN HYDROCHLORIDE
     Indication: TREMOR
     Dosage: 1 MG, TID
     Route: 048
     Dates: start: 20080531, end: 20080908
  14. AKINETON [Concomitant]
     Active Substance: BIPERIDEN HYDROCHLORIDE
     Indication: AKATHISIA
  15. PARIET [Concomitant]
     Active Substance: RABEPRAZOLE SODIUM
     Indication: GASTRITIS EROSIVE
     Dosage: 10 MG, BID
     Route: 048
     Dates: start: 20080910
  16. JZOLOFT [Concomitant]
     Active Substance: SERTRALINE HYDROCHLORIDE
     Indication: DEPRESSION
     Dosage: 100 MG, QD
     Route: 048
     Dates: start: 20080415, end: 20080908

REACTIONS (1)
  - Diabetic ketosis [Recovering/Resolving]

NARRATIVE: CASE EVENT DATE: 20080908
